FAERS Safety Report 18905562 (Version 2)
Quarter: 2021Q2

REPORT INFORMATION
  Report Type: Spontaneous
  Country: US (occurrence: US)
  Receive Date: 20210217
  Receipt Date: 20210629
  Transmission Date: 20210717
  Serious: No
  Sender: FDA-Public Use
  Company Number: US-SA-2021SA054577

PATIENT
  Age: 72 Year
  Sex: Female

DRUGS (3)
  1. DUPIXENT [Suspect]
     Active Substance: DUPILUMAB
     Indication: DERMATITIS ATOPIC
     Dosage: 300 MG, QOW
     Route: 058
     Dates: start: 20200226
  2. TACROLIMUS. [Concomitant]
     Active Substance: TACROLIMUS
  3. FLUOCINONIDE. [Concomitant]
     Active Substance: FLUOCINONIDE

REACTIONS (2)
  - Pruritus [Not Recovered/Not Resolved]
  - Product dose omission issue [Unknown]

NARRATIVE: CASE EVENT DATE: 20210516
